FAERS Safety Report 8791283 (Version 1)
Quarter: 2012Q4

REPORT INFORMATION
  Report Type: Spontaneous
  Country: GB (occurrence: None)
  Receive Date: 20120911
  Receipt Date: 20120911
  Transmission Date: 20130627
  Serious: Yes (Other)
  Sender: FDA-Public Use
  Company Number: SP06055

PATIENT
  Age: 71 Year
  Sex: Male
  Weight: 80 kg

DRUGS (2)
  1. MOVIPREP [Suspect]
     Indication: BOWEL PREPARATION
     Route: 048
     Dates: start: 20120813, end: 20120813
  2. WARFARIN [Concomitant]

REACTIONS (3)
  - Rash generalised [None]
  - Erythema [None]
  - Blood pressure decreased [None]
